FAERS Safety Report 17569217 (Version 1)
Quarter: 2020Q1

REPORT INFORMATION
  Report Type: Spontaneous
  Country: US (occurrence: US)
  Receive Date: 20200316
  Receipt Date: 20200316
  Transmission Date: 20200409
  Serious: Yes (Hospitalization)
  Sender: FDA-Public Use
  Company Number: None

PATIENT
  Age: 72 Year
  Sex: Male
  Weight: 113 kg

DRUGS (1)
  1. IBUPROFEN (IBUPROFEN 600MG TAB) [Suspect]
     Active Substance: IBUPROFEN
     Indication: PAIN
     Route: 048
     Dates: start: 20150101, end: 20200103

REACTIONS (3)
  - Blood creatinine increased [None]
  - Blood urea increased [None]
  - Gastric haemorrhage [None]

NARRATIVE: CASE EVENT DATE: 20200103
